FAERS Safety Report 9104390 (Version 4)
Quarter: 2013Q3

REPORT INFORMATION
  Report Type: Spontaneous
  Country: US (occurrence: US)
  Receive Date: 20130220
  Receipt Date: 20130712
  Transmission Date: 20140515
  Serious: No
  Sender: FDA-Public Use
  Company Number: US-PFIZER INC-2013062892

PATIENT
  Age: 62 Year
  Sex: Male
  Weight: 108 kg

DRUGS (4)
  1. GABAPENTIN [Suspect]
     Indication: NEURALGIA
     Dosage: 600 MG, UNK
  2. GABAPENTIN [Suspect]
     Indication: NERVE INJURY
     Dosage: 1800 MG, UNK
  3. OXYCODONE [Concomitant]
     Indication: NECK PAIN
     Dosage: 500 MG, 2X/DAY
  4. OXYCODONE [Concomitant]
     Indication: BACK PAIN

REACTIONS (3)
  - Drug ineffective [Unknown]
  - Sleep disorder [Unknown]
  - Abdominal discomfort [Unknown]
